FAERS Safety Report 21531428 (Version 1)
Quarter: 2022Q4

REPORT INFORMATION
  Report Type: Report from Study
  Country: US (occurrence: US)
  Receive Date: 20221031
  Receipt Date: 20221031
  Transmission Date: 20230112
  Serious: No
  Sender: FDA-Public Use
  Company Number: US-ABBVIE-4151490

PATIENT
  Sex: Male

DRUGS (1)
  1. SKYRIZI [Suspect]
     Active Substance: RISANKIZUMAB-RZAA
     Indication: Psoriasis
     Dosage: FREQUENCY TEXT: WEEK 0 WEEK 4 THEN EVERY 12 WEEKS; BOTH THE EVENT START DATE WERE IN 2022
     Route: 058
     Dates: start: 20220825

REACTIONS (2)
  - Headache [Unknown]
  - Psoriasis [Unknown]
